FAERS Safety Report 21238547 (Version 1)
Quarter: 2022Q3

REPORT INFORMATION
  Report Type: 
  Country: None (occurrence: None)
  Receive Date: 20220822
  Receipt Date: 20220822
  Transmission Date: 20221026
  Serious: Yes (Hospitalization, Other)
  Sender: FDA-Public Use
  Company Number: None

PATIENT
  Age: 16 Year
  Sex: Female

DRUGS (1)
  1. OXCARBAZEPINE [Suspect]
     Active Substance: OXCARBAZEPINE

REACTIONS (12)
  - Hypogammaglobulinaemia [Recovered/Resolved]
  - Malnutrition [Recovered/Resolved]
  - Food refusal [Recovered/Resolved]
  - Helicobacter infection [Recovered/Resolved]
  - Dyspepsia [Recovered/Resolved]
  - Blood immunoglobulin A decreased [None]
  - Blood immunoglobulin G decreased [Recovered/Resolved]
  - Blood immunoglobulin M decreased [Recovered/Resolved]
  - Iron deficiency anaemia [Recovered/Resolved]
  - Feeding disorder [Unknown]
  - Eating disorder [Unknown]
  - Off label use [Not Recovered/Not Resolved]
